FAERS Safety Report 9054837 (Version 3)
Quarter: 2013Q1

REPORT INFORMATION
  Report Type: Spontaneous
  Country: US (occurrence: US)
  Receive Date: 20130208
  Receipt Date: 20130304
  Transmission Date: 20140127
  Serious: Yes (Death, Hospitalization, Disabling, Other)
  Sender: FDA-Public Use
  Company Number: US-JNJFOC-20130202267

PATIENT
  Age: 86 None
  Sex: Female
  Weight: 61 kg

DRUGS (4)
  1. XARELTO [Suspect]
     Indication: CEREBROVASCULAR ACCIDENT PROPHYLAXIS
     Route: 048
     Dates: start: 20130118, end: 20130131
  2. XARELTO [Suspect]
     Indication: ATRIAL FIBRILLATION
     Route: 048
     Dates: start: 20130118, end: 20130131
  3. RED YEAST RICE EXTRACT [Concomitant]
     Route: 065
  4. CRESTOR [Concomitant]
     Route: 065

REACTIONS (5)
  - Haemorrhage intracranial [Fatal]
  - Fall [Recovered/Resolved]
  - Creatinine renal clearance decreased [Unknown]
  - International normalised ratio increased [Unknown]
  - Malaise [Unknown]
